FAERS Safety Report 6549919-6 (Version None)
Quarter: 2010Q1

REPORT INFORMATION
  Report Type: 
  Country: None (occurrence: None)
  Receive Date: 20100125
  Receipt Date: 20100113
  Transmission Date: 20100710
  Serious: Yes (Other)
  Sender: FDA-Public Use
  Company Number: RS-BAYER-201011116GPV

PATIENT
  Age: 43 Year
  Sex: Female

DRUGS (1)
  1. MIRENA [Suspect]
     Indication: MENORRHAGIA
     Route: 015
     Dates: start: 20060109

REACTIONS (6)
  - BREAST DYSPLASIA [None]
  - BREAST TENDERNESS [None]
  - FIBROADENOMA OF BREAST [None]
  - GENITAL HAEMORRHAGE [None]
  - OESTRADIOL INCREASED [None]
  - OVARIAN CYST [None]
